FAERS Safety Report 19363442 (Version 1)
Quarter: 2021Q2

REPORT INFORMATION
  Report Type: Spontaneous
  Country: PL (occurrence: PL)
  Receive Date: 20210603
  Receipt Date: 20210603
  Transmission Date: 20210717
  Serious: Yes (Other)
  Sender: FDA-Public Use
  Company Number: PL-TEVA-2021-PL-1917725

PATIENT
  Age: 71 Year
  Sex: Female
  Weight: 68 kg

DRUGS (3)
  1. CORTARE AEROZOL INHALACYJNY, ROZTWOR [Suspect]
     Active Substance: BECLOMETHASONE DIPROPIONATE
     Indication: SECRETION DISCHARGE
     Dosage: INITIALLY (FROM 13/11/2017 TO 21/01/2018) 250MCG TWICE A DAY, THEN 250 MCG IN THE MORNING AND 100 MC
     Route: 055
     Dates: start: 20171113, end: 201807
  2. CONCOR [Concomitant]
     Active Substance: BISOPROLOL FUMARATE
  3. RUTINOSCORBIN [Concomitant]
     Active Substance: ASCORBIC ACID\RUTIN

REACTIONS (7)
  - Erythema [Unknown]
  - Dermatomyositis [Unknown]
  - Face oedema [Unknown]
  - Localised oedema [Unknown]
  - Oedema peripheral [Unknown]
  - Pruritus [Unknown]
  - Alopecia [Unknown]

NARRATIVE: CASE EVENT DATE: 201808
